FAERS Safety Report 5419529-2 (Version None)
Quarter: 2007Q3

REPORT INFORMATION
  Report Type: 
  Country: None (occurrence: None)
  Receive Date: 20070817
  Receipt Date: 20070817
  Transmission Date: 20080115
  Serious: Yes (Hospitalization)
  Sender: FDA-Public Use
  Company Number: None

PATIENT
  Sex: Male
  Weight: 95.2 kg

DRUGS (5)
  1. IMATINIB MESYLATE [Suspect]
     Indication: GLIOBLASTOMA MULTIFORME
     Dosage: 500MG DAYS 1-28 PO
     Route: 048
     Dates: start: 20070502, end: 20070529
  2. HYDROZYUREA [Suspect]
     Indication: GLIOBLASTOMA MULTIFORME
     Dosage: 500MG DAYS 1-28 PO
     Route: 048
     Dates: start: 20070502, end: 20070529
  3. LAMICTAL [Concomitant]
  4. DILANTIN [Concomitant]
  5. MULTI-VITAMIN [Concomitant]

REACTIONS (10)
  - ASTHENIA [None]
  - BODY TINEA [None]
  - DERMATITIS ACNEIFORM [None]
  - LOBAR PNEUMONIA [None]
  - MENTAL STATUS CHANGES [None]
  - PAIN IN EXTREMITY [None]
  - PYREXIA [None]
  - RASH [None]
  - SPEECH DISORDER [None]
  - URINARY INCONTINENCE [None]
